FAERS Safety Report 9548467 (Version 1)
Quarter: 2013Q3

REPORT INFORMATION
  Report Type: Spontaneous
  Country: US (occurrence: None)
  Receive Date: 20130701
  Receipt Date: 20130701
  Transmission Date: 20140515
  Serious: Yes (Other)
  Sender: FDA-Public Use
  Company Number: 1588076

PATIENT
  Age: 46 Year
  Sex: Female

DRUGS (1)
  1. QUELICIN [Suspect]
     Indication: SURGERY
     Dosage: NOT REPORTED, UNKNOWN
     Dates: start: 20130130

REACTIONS (1)
  - Drug effect prolonged [None]
